FAERS Safety Report 9463239 (Version 2)
Quarter: 2013Q4

REPORT INFORMATION
  Report Type: Spontaneous
  Country: US (occurrence: US)
  Receive Date: 20130818
  Receipt Date: 20131106
  Transmission Date: 20140711
  Serious: Yes (Other)
  Sender: FDA-Public Use
  Company Number: US-TEVA-426056USA

PATIENT
  Sex: Female

DRUGS (1)
  1. PARAGARD 380A [Suspect]
     Indication: CONTRACEPTION
     Route: 015
     Dates: start: 20130306, end: 20130403

REACTIONS (6)
  - Device dislocation [Recovered/Resolved]
  - Complication of device insertion [Unknown]
  - Muscle spasms [Recovered/Resolved]
  - Pain [Unknown]
  - Metrorrhagia [Unknown]
  - Adverse event [Unknown]
